FAERS Safety Report 18417439 (Version 5)
Quarter: 2021Q4

REPORT INFORMATION
  Report Type: Spontaneous
  Country: US (occurrence: US)
  Receive Date: 20201022
  Receipt Date: 20211215
  Transmission Date: 20220304
  Serious: Yes (Hospitalization, Other)
  Sender: FDA-Public Use
  Company Number: US-SEATTLE GENETICS-2020SGN02528

PATIENT
  Sex: Female

DRUGS (10)
  1. TUKYSA [Suspect]
     Active Substance: TUCATINIB
     Indication: Breast cancer female
     Dosage: UNK UNK, BID
     Route: 048
     Dates: start: 20200605
  2. TUKYSA [Suspect]
     Active Substance: TUCATINIB
     Dosage: UNK
     Route: 065
  3. TUKYSA [Suspect]
     Active Substance: TUCATINIB
     Dosage: UNK
     Route: 065
  4. TUKYSA [Suspect]
     Active Substance: TUCATINIB
     Dosage: UNK
     Route: 065
  5. TUKYSA [Suspect]
     Active Substance: TUCATINIB
     Dosage: UNK
     Route: 065
  6. TUKYSA [Suspect]
     Active Substance: TUCATINIB
     Dosage: UNK
     Route: 065
  7. TUKYSA [Suspect]
     Active Substance: TUCATINIB
     Dosage: UNK
     Route: 065
  8. TUKYSA [Suspect]
     Active Substance: TUCATINIB
     Dosage: UNK
     Route: 065
  9. CAPECITABINE [Suspect]
     Active Substance: CAPECITABINE
     Indication: Breast cancer female
     Dosage: UNK
     Route: 065
     Dates: start: 20200605
  10. HERCEPTIN [Suspect]
     Active Substance: TRASTUZUMAB
     Indication: Breast cancer female
     Dosage: UNK
     Route: 065
     Dates: start: 20200603, end: 20200603

REACTIONS (26)
  - Hospitalisation [Unknown]
  - Neuropathy peripheral [Unknown]
  - Constipation [Unknown]
  - Dry mouth [Unknown]
  - Spinal pain [Unknown]
  - Taste disorder [Unknown]
  - Unevaluable event [Unknown]
  - Faeces soft [Unknown]
  - Urine analysis abnormal [Unknown]
  - Heart rate increased [Unknown]
  - Product dose omission issue [Unknown]
  - Cystitis [Unknown]
  - Abdominal tenderness [Unknown]
  - Adverse drug reaction [Unknown]
  - Cardiomegaly [Unknown]
  - Dizziness [Unknown]
  - Dysuria [Unknown]
  - Urethritis noninfective [Unknown]
  - Balance disorder [Unknown]
  - Abdominal discomfort [Unknown]
  - Product dose omission issue [Unknown]
  - Hypotension [Unknown]
  - Palmar-plantar erythrodysaesthesia syndrome [Unknown]
  - Decreased appetite [Unknown]
  - Skin exfoliation [Unknown]
  - Erythema [Unknown]
